FAERS Safety Report 24339942 (Version 2)
Quarter: 2024Q4

REPORT INFORMATION
  Report Type: Spontaneous
  Country: US (occurrence: US)
  Receive Date: 20240919
  Receipt Date: 20241023
  Transmission Date: 20250115
  Serious: No
  Sender: PFIZER
  Company Number: US-PFIZER INC-PV202400117245

PATIENT
  Age: 15 Year
  Sex: Male
  Weight: 46.2 kg

DRUGS (1)
  1. GENOTROPIN [Suspect]
     Active Substance: SOMATROPIN
     Indication: Short stature
     Dosage: 2.6 MG, DAILY

REACTIONS (1)
  - Injection site pain [Unknown]
